FAERS Safety Report 9649647 (Version 2)
Quarter: 2013Q4

REPORT INFORMATION
  Report Type: Report from Study
  Country: US (occurrence: US)
  Receive Date: 20131028
  Receipt Date: 20131028
  Transmission Date: 20140711
  Serious: Yes (Hospitalization)
  Sender: FDA-Public Use
  Company Number: US-MERCK-1310USA002379

PATIENT
  Age: 58 Year
  Sex: Female
  Weight: 98.1 kg

DRUGS (19)
  1. MK-7965 [Suspect]
     Indication: PLASMA CELL MYELOMA
     Dosage: 12 MG/M2, 2 HOURS ON DAYS 1, 8 AND 15 CYCLE 1
     Route: 042
     Dates: start: 20130827, end: 20130827
  2. MK-7965 [Suspect]
     Dosage: 12 MG/M2, 2 HOURS ON DAYS 1, 8 AND 15 CYCLE 1
     Route: 042
     Dates: start: 20130903, end: 20130903
  3. MK-7965 [Suspect]
     Dosage: 12 MG/M2,  2 HOURS ON DAYS 1, 8 AND 15 CYCLE 1
     Route: 042
     Dates: start: 20130910, end: 20130910
  4. MK-7965 [Suspect]
     Dosage: 12 MG/M2, CYCLE 2
     Route: 042
     Dates: start: 20130924, end: 20130924
  5. HEXADROL TABLETS [Suspect]
     Indication: PLASMA CELL MYELOMA
     Dosage: 20 MG, ON DAYS 1,2,8,9,15 AND 16 CYCLE 1
     Route: 048
     Dates: start: 20130827, end: 20130827
  6. HEXADROL TABLETS [Suspect]
     Dosage: 20 MG, ON DAYS 1,2,8,9,15 AND 16 CYCLE 1
     Route: 048
     Dates: start: 20130828, end: 20130828
  7. HEXADROL TABLETS [Suspect]
     Dosage: 20 MG, ON DAYS 1,2,8,9,15 AND 16 CYCLE 1
     Route: 048
     Dates: start: 20130903, end: 20130903
  8. HEXADROL TABLETS [Suspect]
     Dosage: 20 MG, ON DAYS 1,2,8,9,15 AND 16 CYCLE 1
     Route: 048
     Dates: start: 20130904, end: 20130904
  9. HEXADROL TABLETS [Suspect]
     Dosage: 20 MG, ON DAYS 1,2,8,9,15 AND 16 CYCLE 1
     Route: 048
     Dates: start: 20130910, end: 20130910
  10. HEXADROL TABLETS [Suspect]
     Dosage: 20 MG, ON DAYS 1,2,8,9,15 AND 16 CYCLE 1
     Route: 048
     Dates: start: 20130911, end: 20130911
  11. HEXADROL TABLETS [Suspect]
     Dosage: 20 MG, ON DAYS 1,2,8,9,15 AND 16 CYCLE 2
     Route: 048
     Dates: start: 20130924, end: 20130924
  12. BORTEZOMIB [Suspect]
     Indication: PLASMA CELL MYELOMA
     Dosage: 1 MG/M2, ON DAYS 1,8 AND 15 CYCLE 1
     Route: 058
     Dates: start: 20130827, end: 20130827
  13. BORTEZOMIB [Suspect]
     Dosage: 1 MG/M2, ON DAYS 1,8 AND 15 CYCLE 1
     Route: 058
     Dates: start: 20130903, end: 20130903
  14. BORTEZOMIB [Suspect]
     Dosage: 1 MG/M2, ON DAYS 1,8 AND 15 CYCLE 1
     Route: 058
     Dates: start: 20130910, end: 20130910
  15. BORTEZOMIB [Suspect]
     Dosage: 1 MG/M2, ON DAYS 1,8 AND 15 CYCLE 2
     Route: 058
     Dates: start: 20130924, end: 20130924
  16. BONIVA [Concomitant]
  17. METOPROLOL [Concomitant]
  18. SYNTHROID [Concomitant]
  19. CRESTOR [Concomitant]

REACTIONS (4)
  - Skin ulcer [Not Recovered/Not Resolved]
  - Hypotension [Recovered/Resolved]
  - Hypocalcaemia [Recovered/Resolved]
  - Anaemia [Recovered/Resolved]
